FAERS Safety Report 8277344-9 (Version None)
Quarter: 2012Q2

REPORT INFORMATION
  Report Type: 
  Country: None (occurrence: None)
  Receive Date: 20120412
  Receipt Date: 20120405
  Transmission Date: 20120825
  Serious: Yes (Death)
  Sender: FDA-Public Use
  Company Number: US-PFIZER INC-2012054455

PATIENT
  Sex: Female

DRUGS (1)
  1. SUTENT [Suspect]
     Indication: THYROID CANCER
     Dosage: 37.5 MG (25MG +12.5MG), 1X/DAY
     Route: 048
     Dates: start: 20120201, end: 20120301

REACTIONS (4)
  - DISEASE PROGRESSION [None]
  - THYROID CANCER [None]
  - DRY MOUTH [None]
  - OROPHARYNGEAL PAIN [None]
